FAERS Safety Report 13786581 (Version 1)
Quarter: 2017Q3

REPORT INFORMATION
  Report Type: Spontaneous
  Country: US (occurrence: US)
  Receive Date: 20170725
  Receipt Date: 20170725
  Transmission Date: 20171127
  Serious: No
  Sender: FDA-Public Use
  Company Number: US-JNJFOC-20170528819

PATIENT
  Sex: Female

DRUGS (4)
  1. TYLENOL REGULAR STRENGTH [Suspect]
     Active Substance: ACETAMINOPHEN
     Indication: MUSCULOSKELETAL PAIN
     Dosage: AS NEEDED
     Route: 048
  2. ACETAMINOPHEN W/HYDROCODONE [Concomitant]
     Active Substance: ACETAMINOPHEN\HYDROCODONE
     Indication: ARTHRALGIA
     Route: 065
  3. ACETAMINOPHEN W/HYDROCODONE [Concomitant]
     Active Substance: ACETAMINOPHEN\HYDROCODONE
     Indication: MUSCULOSKELETAL PAIN
     Route: 065
  4. TYLENOL REGULAR STRENGTH [Suspect]
     Active Substance: ACETAMINOPHEN
     Indication: ARTHRALGIA
     Dosage: AS NEEDED
     Route: 048

REACTIONS (4)
  - Reaction to excipient [Recovered/Resolved]
  - Incorrect dose administered [Recovered/Resolved]
  - Drug administration error [Recovered/Resolved]
  - Malaise [Recovered/Resolved]
